FAERS Safety Report 10260896 (Version 1)
Quarter: 2014Q2

REPORT INFORMATION
  Report Type: Spontaneous
  Country: TR (occurrence: None)
  Receive Date: 20140623
  Receipt Date: 20140623
  Transmission Date: 20141212
  Serious: Yes (Hospitalization)
  Sender: FDA-Public Use
  Company Number: 7298392

PATIENT
  Age: 45 Year
  Sex: Female

DRUGS (4)
  1. REBIF [Suspect]
     Indication: MULTIPLE SCLEROSIS
  2. EUTHYROX [Suspect]
     Indication: HYPERTHYROIDISM
  3. FAMPRIDINE [Suspect]
     Indication: ASTHENIA
  4. BENEXOL [Suspect]
     Indication: VITAMIN B COMPLEX DEFICIENCY

REACTIONS (7)
  - Multiple sclerosis relapse [None]
  - Urinary tract infection [None]
  - Asthenia [None]
  - Hepatic enzyme increased [None]
  - Chills [None]
  - Myalgia [None]
  - Arthralgia [None]
